FAERS Safety Report 19680955 (Version 1)
Quarter: 2021Q3

REPORT INFORMATION
  Report Type: Spontaneous
  Country: CA (occurrence: CA)
  Receive Date: 20210810
  Receipt Date: 20210810
  Transmission Date: 20211014
  Serious: Yes (Other)
  Sender: FDA-Public Use
  Company Number: CA-PFIZER INC-202100992957

PATIENT
  Age: 39 Year
  Sex: Male
  Weight: 81 kg

DRUGS (2)
  1. SULFASALAZINE. [Suspect]
     Active Substance: SULFASALAZINE
     Dosage: 1 DF
     Route: 065
     Dates: start: 202104, end: 2021
  2. PREDNISONE. [Concomitant]
     Active Substance: PREDNISONE
     Dosage: 40 MG, DAILY X 2 WEEKS WITH TAPER
     Dates: start: 202106

REACTIONS (6)
  - Drug ineffective [Unknown]
  - Anal fissure [Unknown]
  - Aphthous ulcer [Unknown]
  - Condition aggravated [Unknown]
  - Loss of personal independence in daily activities [Unknown]
  - Erythema nodosum [Unknown]

NARRATIVE: CASE EVENT DATE: 2021
